FAERS Safety Report 21606551 (Version 1)
Quarter: 2022Q4

REPORT INFORMATION
  Report Type: Spontaneous
  Country: HU (occurrence: HU)
  Receive Date: 20221117
  Receipt Date: 20221117
  Transmission Date: 20230113
  Serious: Yes (Hospitalization, Other)
  Sender: FDA-Public Use
  Company Number: HU-ABBVIE-4203814

PATIENT
  Age: 54 Year
  Sex: Male
  Weight: 64 kg

DRUGS (8)
  1. RINVOQ [Suspect]
     Active Substance: UPADACITINIB
     Indication: Ankylosing spondylitis
     Dosage: 15 MILLIGRAM
     Route: 048
     Dates: start: 20220828
  2. RINVOQ [Suspect]
     Active Substance: UPADACITINIB
     Indication: Ankylosing spondylitis
     Dosage: 15 MILLIGRAM
     Route: 048
     Dates: start: 202105, end: 20220707
  3. VITAMIN D3 [Concomitant]
     Active Substance: CHOLECALCIFEROL
     Indication: Prophylaxis
     Dosage: 3000 IU (INTERNATIONAL UNIT)
     Route: 048
  4. Calcium citrate (Citrokalcium) [Concomitant]
     Indication: Prophylaxis
     Dosage: 200 MILLIGRAM
     Route: 048
  5. Carvedilol (Talliton) [Concomitant]
     Indication: Hypertension
     Dosage: 25 MILLIGRAM
     Route: 048
  6. ASPIRIN [Concomitant]
     Active Substance: ASPIRIN
     Indication: Prophylaxis
     Dosage: 100 MILLIGRAM
     Route: 048
  7. Irbesartan (Irabel) [Concomitant]
     Indication: Hypertension
     Dosage: 150 MILLIGRAM
     Route: 048
  8. Metformin (Meforal) [Concomitant]
     Indication: Diabetes mellitus
     Dosage: 2000 MILLIGRAM
     Route: 048

REACTIONS (2)
  - Prostatitis [Unknown]
  - Prostate cancer [Unknown]

NARRATIVE: CASE EVENT DATE: 20220501
